FAERS Safety Report 6880876-9 (Version None)
Quarter: 2010Q3

REPORT INFORMATION
  Report Type: 
  Country: None (occurrence: None)
  Receive Date: 20100728
  Receipt Date: 20100721
  Transmission Date: 20110219
  Serious: Yes (Hospitalization)
  Sender: FDA-Public Use
  Company Number: JP-BRISTOL-MYERS SQUIBB COMPANY-14076129

PATIENT
  Age: 49 Year
  Sex: Female
  Weight: 54 kg

DRUGS (11)
  1. ABATACEPT [Suspect]
     Indication: RHEUMATOID ARTHRITIS
     Route: 041
     Dates: start: 20070426, end: 20091229
  2. PREDONINE [Suspect]
     Indication: RHEUMATOID ARTHRITIS
     Dosage: 12SEP09 5MG SID
     Route: 048
     Dates: start: 20080131
  3. RHEUMATREX [Suspect]
     Indication: RHEUMATOID ARTHRITIS
     Dosage: FORMULATION - CAPSULE RHEUMATREX TAB 4MG/WK PO 05DEC09-24JAN10
     Route: 048
  4. LORCAM [Suspect]
     Indication: RHEUMATOID ARTHRITIS
     Dosage: FORMULATION - TABLET
     Route: 048
     Dates: start: 20091008
  5. FOLIAMIN [Concomitant]
     Indication: PROPHYLAXIS
     Dosage: FORMULATION - TABLET FROM 07DEC09
     Route: 048
     Dates: start: 20070201, end: 20100125
  6. KETOPROFEN [Concomitant]
     Indication: RHEUMATOID ARTHRITIS
     Route: 061
  7. FLURBIPROFEN [Concomitant]
     Indication: RHEUMATOID ARTHRITIS
     Route: 061
  8. MUCOSTA [Concomitant]
     Indication: PROPHYLAXIS
     Dosage: FORMULATION - TABLET TAB 150MG/DAY PO
     Route: 048
     Dates: start: 20091008
  9. MUCOSTA [Concomitant]
     Indication: PROPHYLAXIS AGAINST GASTROINTESTINAL ULCER
     Dosage: FORMULATION - TABLET TAB 150MG/DAY PO
     Route: 048
     Dates: start: 20091008
  10. JUVELA N [Concomitant]
     Indication: PROMOTION OF PERIPHERAL CIRCULATION
     Dosage: FORMULATION - CAPSULE
     Route: 048
     Dates: start: 20091008
  11. JUVELA N [Concomitant]
     Indication: PROPHYLAXIS AGAINST GASTROINTESTINAL ULCER
     Dosage: FORMULATION - CAPSULE
     Route: 048
     Dates: start: 20091008

REACTIONS (4)
  - ATRIAL FIBRILLATION [None]
  - CARDIAC FAILURE [None]
  - FOOT DEFORMITY [None]
  - MITRAL VALVE INCOMPETENCE [None]
